FAERS Safety Report 24163285 (Version 2)
Quarter: 2024Q3

REPORT INFORMATION
  Report Type: Spontaneous
  Country: KR (occurrence: KR)
  Receive Date: 20240801
  Receipt Date: 20240823
  Transmission Date: 20241017
  Serious: Yes (Death, Hospitalization, Other)
  Sender: UNITED THERAPEUTICS
  Company Number: KR-UNITED THERAPEUTICS-UNT-2024-023289

PATIENT
  Age: 59 Year
  Sex: Male
  Weight: 50 kg

DRUGS (2)
  1. REMODULIN [Suspect]
     Active Substance: TREPROSTINIL
     Indication: Pulmonary arterial hypertension
     Dosage: 0.012 ?G/KG, CONTINUING
  2. REMODULIN [Suspect]
     Active Substance: TREPROSTINIL
     Dosage: UNK, CONTINUING
     Dates: start: 20240711, end: 20240730

REACTIONS (2)
  - Pulmonary arterial hypertension [Fatal]
  - Dyspnoea [Fatal]

NARRATIVE: CASE EVENT DATE: 20240701
